FAERS Safety Report 5829621-6 (Version None)
Quarter: 2008Q3

REPORT INFORMATION
  Report Type: 
  Country: None (occurrence: None)
  Receive Date: 20080729
  Receipt Date: 20080718
  Transmission Date: 20090109
  Serious: Yes (Hospitalization)
  Sender: FDA-Public Use
  Company Number: 2008BI018279

PATIENT
  Sex: Female

DRUGS (1)
  1. AVONEX [Suspect]
     Indication: MULTIPLE SCLEROSIS
     Dosage: IM; 30 UG;QW;IM
     Route: 030
     Dates: start: 20010101

REACTIONS (5)
  - ASTHMA [None]
  - BASAL CELL CARCINOMA [None]
  - HAEMORRHOIDS [None]
  - RECTAL PROLAPSE [None]
  - SKIN CANCER [None]
